FAERS Safety Report 4709494-5 (Version None)
Quarter: 2005Q3

REPORT INFORMATION
  Report Type: 
  Country: None (occurrence: None)
  Receive Date: 20050706
  Receipt Date: 20050620
  Transmission Date: 20060218
  Serious: No
  Sender: FDA-Public Use
  Company Number: 2005-04-1289

PATIENT
  Age: 41 Year
  Sex: Male
  Weight: 74 kg

DRUGS (6)
  1. CLARITIN [Suspect]
     Indication: RHINITIS ALLERGIC
     Dosage: 10-20 MG* ORAL
     Route: 048
     Dates: start: 20041225, end: 20050330
  2. CLARITIN [Suspect]
     Indication: RHINITIS ALLERGIC
     Dosage: 10-20 MG* ORAL
     Route: 048
     Dates: start: 20050331, end: 20050408
  3. URINORM TABLETS [Concomitant]
  4. GRANDAXIN [Concomitant]
  5. MERISLON TABLETS [Concomitant]
  6. KENACORT-A INJECTABLE [Concomitant]

REACTIONS (10)
  - ALANINE AMINOTRANSFERASE INCREASED [None]
  - CONDITION AGGRAVATED [None]
  - GAMMA-GLUTAMYLTRANSFERASE INCREASED [None]
  - GASTROENTERITIS [None]
  - HEPATIC FUNCTION ABNORMAL [None]
  - LYMPHOCYTE COUNT INCREASED [None]
  - NEUTROPHIL COUNT DECREASED [None]
  - PLATELET COUNT ABNORMAL [None]
  - RHINITIS ALLERGIC [None]
  - WHITE BLOOD CELL COUNT DECREASED [None]
